FAERS Safety Report 6483419-7 (Version None)
Quarter: 2009Q4

REPORT INFORMATION
  Report Type: 
  Country: None (occurrence: None)
  Receive Date: 20091209
  Receipt Date: 20091127
  Transmission Date: 20100525
  Serious: Yes (Other)
  Sender: FDA-Public Use
  Company Number: BR-PFIZER INC-2009295293

PATIENT
  Age: 48 Year
  Sex: Female
  Weight: 40.317 kg

DRUGS (1)
  1. FRONTAL [Suspect]
     Indication: NEURITIS
     Dosage: 7 MG, 1X/DAY
     Route: 048
     Dates: start: 19970101

REACTIONS (5)
  - DRUG EFFECT INCREASED [None]
  - DRUG EFFECT PROLONGED [None]
  - DRUG INEFFECTIVE [None]
  - EAR DISORDER [None]
  - RETINAL DISORDER [None]
